FAERS Safety Report 21736098 (Version 1)
Quarter: 2022Q4

REPORT INFORMATION
  Report Type: Spontaneous
  Country: US (occurrence: US)
  Receive Date: 20221215
  Receipt Date: 20221215
  Transmission Date: 20230113
  Serious: No
  Sender: FDA-Public Use
  Company Number: US-NOVOPROD-965707

PATIENT
  Age: 62 Year
  Sex: Male

DRUGS (3)
  1. LEVEMIR [Suspect]
     Active Substance: INSULIN DETEMIR
     Indication: Type 2 diabetes mellitus
     Dosage: 30 UNITS IN THE AM AND 20 UNITS IN THE PM, 50 UNITS AM AND 50 UNITS PM
     Route: 058
     Dates: start: 20220411
  2. METFORMIN [Suspect]
     Active Substance: METFORMIN HYDROCHLORIDE
     Indication: Type 2 diabetes mellitus
     Dosage: 1000 MG, QD
     Route: 048
  3. FARXIGA [Suspect]
     Active Substance: DAPAGLIFLOZIN PROPANEDIOL
     Indication: Type 2 diabetes mellitus
     Dosage: 10 MG, QD
     Route: 048

REACTIONS (14)
  - Blood electrolytes abnormal [Recovered/Resolved]
  - Blood calcium decreased [Not Recovered/Not Resolved]
  - Blood potassium decreased [Not Recovered/Not Resolved]
  - Pollakiuria [Recovered/Resolved]
  - Fluid retention [Not Recovered/Not Resolved]
  - Dehydration [Not Recovered/Not Resolved]
  - Swelling [Not Recovered/Not Resolved]
  - Dry eye [Not Recovered/Not Resolved]
  - Protein deficiency [Recovered/Resolved]
  - Bone pain [Recovered/Resolved]
  - Diarrhoea [Recovered/Resolved]
  - Constipation [Recovered/Resolved]
  - Blood glucose increased [Not Recovered/Not Resolved]
  - Diabetes mellitus inadequate control [Not Recovered/Not Resolved]

NARRATIVE: CASE EVENT DATE: 20220411
